FAERS Safety Report 8389971-9 (Version None)
Quarter: 2012Q2

REPORT INFORMATION
  Report Type: 
  Country: None (occurrence: None)
  Receive Date: 20120529
  Receipt Date: 20120525
  Transmission Date: 20120825
  Serious: No
  Sender: FDA-Public Use
  Company Number: US-PFIZER INC-2012127279

PATIENT
  Sex: Male
  Weight: 113 kg

DRUGS (4)
  1. PRAVACHOL [Concomitant]
     Indication: BLOOD CHOLESTEROL ABNORMAL
     Dosage: 20 MG, DAILY
  2. NORVASC [Concomitant]
     Indication: HYPERTENSION
     Dosage: 5 MG, DAILY
  3. LYRICA [Suspect]
     Indication: BACK DISORDER
     Dosage: UNK
     Dates: start: 20120501, end: 20120501
  4. LISINOPRIL [Concomitant]
     Indication: HYPERTENSION
     Dosage: 10 MG, DAILY

REACTIONS (2)
  - CONFUSIONAL STATE [None]
  - FEELING ABNORMAL [None]
